FAERS Safety Report 4326416-X (Version None)
Quarter: 2004Q1

REPORT INFORMATION
  Report Type: 
  Country: None (occurrence: None)
  Receive Date: 20040325
  Receipt Date: 20031216
  Transmission Date: 20041129
  Serious: No
  Sender: FDA-Public Use
  Company Number: US061090

PATIENT
  Age: 44 Year
  Sex: Female

DRUGS (4)
  1. NEULASTA [Suspect]
     Indication: CHEMOTHERAPY
  2. DOXORUBICIN HYDROCHLORIDE [Concomitant]
  3. PACLITAXEL [Concomitant]
  4. CYCLOPHOSPHAMIDE [Concomitant]

REACTIONS (1)
  - INJECTION SITE REACTION [None]
